FAERS Safety Report 17661484 (Version 1)
Quarter: 2020Q2

REPORT INFORMATION
  Report Type: Spontaneous
  Country: US (occurrence: US)
  Receive Date: 20200413
  Receipt Date: 20200413
  Transmission Date: 20200713
  Serious: Yes (Hospitalization)
  Sender: FDA-Public Use
  Company Number: None

PATIENT
  Age: 61 Year
  Sex: Female
  Weight: 61.1 kg

DRUGS (8)
  1. ACETAMINOPHEN. [Concomitant]
     Active Substance: ACETAMINOPHEN
     Dates: start: 20200305
  2. CHOLECALCIFEROL [Concomitant]
     Active Substance: CHOLECALCIFEROL
     Dates: start: 20190906
  3. ONDANSETRON [Concomitant]
     Active Substance: ONDANSETRON
     Dates: start: 20190906
  4. ABEMACICLIB [Suspect]
     Active Substance: ABEMACICLIB
     Indication: COLON CANCER
     Route: 048
     Dates: start: 20200305, end: 20200401
  5. AMLODIPINE [Concomitant]
     Active Substance: AMLODIPINE BESYLATE
     Dates: start: 20200130
  6. CALCIUM CARBONATE-VITAMIN D3 [Concomitant]
     Dates: start: 20191004
  7. LISINOPRIL. [Concomitant]
     Active Substance: LISINOPRIL
     Dates: start: 20200305
  8. OMEPRAZOLE. [Concomitant]
     Active Substance: OMEPRAZOLE
     Dates: start: 20200305

REACTIONS (3)
  - Tumour pain [None]
  - Pleural effusion [None]
  - Abdominal pain [None]

NARRATIVE: CASE EVENT DATE: 20200411
